FAERS Safety Report 7621424-5 (Version None)
Quarter: 2011Q3

REPORT INFORMATION
  Report Type: 
  Country: None (occurrence: None)
  Receive Date: 20110719
  Receipt Date: 20110623
  Transmission Date: 20111222
  Serious: No
  Sender: FDA-Public Use
  Company Number: US-B.I. PHARMACEUTICALS,INC./RIDGEFIELD-2011-BP-11285BP

PATIENT
  Sex: Female

DRUGS (11)
  1. SPIRIVA [Suspect]
     Indication: CHRONIC OBSTRUCTIVE PULMONARY DISEASE
     Dosage: 18 MCG
     Route: 055
     Dates: start: 20110412
  2. SPIRIVA [Suspect]
     Dosage: 18 MCG
     Route: 048
     Dates: start: 20110201, end: 20110201
  3. ADVAIR DISKUS 100/50 [Concomitant]
     Indication: CHRONIC OBSTRUCTIVE PULMONARY DISEASE
     Route: 055
  4. ALBUTEROL INHALER [Concomitant]
     Indication: CHRONIC OBSTRUCTIVE PULMONARY DISEASE
     Route: 055
  5. HYDROCHLOROTHIAZIDE [Concomitant]
     Indication: PROPHYLAXIS
     Route: 048
  6. VICODIN [Concomitant]
     Indication: BACK PAIN
     Route: 048
  7. XANAX [Concomitant]
     Indication: ANXIETY
     Route: 048
  8. LEVOTHYROXINE SODIUM [Concomitant]
     Indication: HYPOTHYROIDISM
     Route: 048
  9. IBUPROFEN [Concomitant]
     Indication: PAIN
     Dosage: 600 MG
     Route: 048
  10. ALBUTEROL [Concomitant]
     Indication: CHRONIC OBSTRUCTIVE PULMONARY DISEASE
  11. IPRATROPIUM BROMIDE [Concomitant]
     Indication: CHRONIC OBSTRUCTIVE PULMONARY DISEASE
     Route: 055

REACTIONS (10)
  - EYE PRURITUS [None]
  - DRUG HYPERSENSITIVITY [None]
  - LUNG DISORDER [None]
  - CONFUSIONAL STATE [None]
  - FATIGUE [None]
  - DYSURIA [None]
  - URTICARIA [None]
  - PNEUMONIA [None]
  - PRURITUS [None]
  - CHRONIC OBSTRUCTIVE PULMONARY DISEASE [None]
